FAERS Safety Report 18716871 (Version 1)
Quarter: 2021Q1

REPORT INFORMATION
  Report Type: Spontaneous
  Country: SK (occurrence: SK)
  Receive Date: 20210108
  Receipt Date: 20210108
  Transmission Date: 20210419
  Serious: Yes (Hospitalization)
  Sender: FDA-Public Use
  Company Number: SK-PFIZER INC-2021002155

PATIENT
  Age: 57 Year
  Sex: Female
  Weight: 37 kg

DRUGS (2)
  1. MEROPENEM. [Suspect]
     Active Substance: MEROPENEM
     Indication: TUBULOINTERSTITIAL NEPHRITIS
     Dosage: 1 G, 2X/DAY (EVERY 12 HOURS)
     Route: 042
     Dates: start: 20200928
  2. FLUCONAZOLE. [Concomitant]
     Active Substance: FLUCONAZOLE
     Indication: TUBULOINTERSTITIAL NEPHRITIS
     Dosage: UNK

REACTIONS (3)
  - Clostridial infection [Unknown]
  - Off label use [Unknown]
  - Enterocolitis bacterial [Unknown]

NARRATIVE: CASE EVENT DATE: 20200928
